FAERS Safety Report 13910989 (Version 1)
Quarter: 2017Q3

REPORT INFORMATION
  Report Type: Spontaneous
  Country: US (occurrence: US)
  Receive Date: 20170828
  Receipt Date: 20170828
  Transmission Date: 20171127
  Serious: Yes (Hospitalization)
  Sender: FDA-Public Use
  Company Number: US-ROMARKLABS-2017-US-000102

PATIENT
  Age: 79 Year
  Sex: Female
  Weight: 72.12 kg

DRUGS (4)
  1. ALINIA [Suspect]
     Active Substance: NITAZOXANIDE
     Indication: CRYPTOSPORIDIOSIS INFECTION
     Dosage: 1 TAB TWICE DAILY
     Route: 048
     Dates: start: 20170803
  2. PROTONIX [Concomitant]
     Active Substance: PANTOPRAZOLE SODIUM
     Indication: GASTROOESOPHAGEAL REFLUX DISEASE
     Dosage: DAILY
     Route: 048
  3. CARVEDILOL. [Concomitant]
     Active Substance: CARVEDILOL
     Indication: HYPERTENSION
     Dosage: DAILY
     Route: 048
  4. LIPITOR [Concomitant]
     Active Substance: ATORVASTATIN CALCIUM
     Indication: HYPERLIPIDAEMIA
     Dosage: 20MG PO QHS
     Route: 048

REACTIONS (1)
  - Pancreatitis acute [Recovering/Resolving]

NARRATIVE: CASE EVENT DATE: 20170810
